FAERS Safety Report 9146984 (Version 2)
Quarter: 2013Q1

REPORT INFORMATION
  Report Type: Spontaneous
  Country: JP (occurrence: None)
  Receive Date: 20130201
  Receipt Date: 20130220
  Transmission Date: 20140127
  Serious: Yes (Death)
  Sender: FDA-Public Use
  Company Number: JP-010780

PATIENT
  Age: 74 Year
  Sex: Male

DRUGS (7)
  1. GONAX [Suspect]
     Indication: PROSTATE CANCER
     Dosage: (240  MG  1X  SUBCUTANEOUS)?(11/19/2012  TO  11/19/2012)
     Route: 058
     Dates: start: 20121119, end: 20121119
  2. ODYNE [Concomitant]
  3. LASIX [Concomitant]
  4. ALDACTONE A [Concomitant]
  5. PANCRELIPASE\PANCRELIPASE AMYLASE\PANCRELIPASE LIPASE\PANCRELIPASE PROTEASE [Concomitant]
  6. ACETAMINOPHEN, CAFFEINE, ASPIRIN, SALICYLAMIDE [Concomitant]
  7. ANTI-ANDROGENS [Concomitant]

REACTIONS (4)
  - Pyrexia [None]
  - Prostatic specific antigen increased [None]
  - Haemorrhage [None]
  - Hepatic cancer [None]
